FAERS Safety Report 11618732 (Version 1)
Quarter: 2015Q4

REPORT INFORMATION
  Report Type: Report from Study
  Country: US (occurrence: US)
  Receive Date: 20151012
  Receipt Date: 20151012
  Transmission Date: 20160304
  Serious: No
  Sender: FDA-Public Use
  Company Number: US-AMGEN-USASL2015102254

PATIENT
  Age: 55 Year
  Sex: Female

DRUGS (2)
  1. VITAMIN C [Concomitant]
     Active Substance: ASCORBIC ACID
     Dosage: UNK
  2. ENBREL [Suspect]
     Active Substance: ETANERCEPT
     Indication: PRODUCT USED FOR UNKNOWN INDICATION
     Dosage: 50 MG, UNK
     Route: 065
     Dates: start: 20150903

REACTIONS (8)
  - Back disorder [Unknown]
  - Sciatica [Unknown]
  - Dizziness [Unknown]
  - No therapeutic response [Unknown]
  - Fatigue [Unknown]
  - Limb discomfort [Unknown]
  - Asthenia [Unknown]
  - Mobility decreased [Unknown]

NARRATIVE: CASE EVENT DATE: 201509
